FAERS Safety Report 6117564-2 (Version None)
Quarter: 2009Q1

REPORT INFORMATION
  Report Type: 
  Country: None (occurrence: None)
  Receive Date: 20090314
  Receipt Date: 20090120
  Transmission Date: 20090719
  Serious: No
  Sender: FDA-Public Use
  Company Number: US-ABBOTT-09P-163-0498941-00

PATIENT
  Sex: Male
  Weight: 63.56 kg

DRUGS (8)
  1. HUMIRA [Suspect]
     Indication: CROHN'S DISEASE
     Route: 058
     Dates: start: 20070101
  2. PENTASA [Concomitant]
     Indication: CROHN'S DISEASE
     Dosage: 8 -250MG  PER DAY 4 Q AM 4 Q PM
     Route: 048
  3. PRILOSEC [Concomitant]
     Indication: GASTROOESOPHAGEAL REFLUX DISEASE
     Route: 048
  4. PREDNISONE [Concomitant]
     Indication: CROHN'S DISEASE
     Dosage: QD
     Route: 048
  5. ZYRTEC [Concomitant]
     Indication: HYPERSENSITIVITY
     Route: 048
  6. FLUOXETINE [Concomitant]
     Indication: DEPRESSION
     Route: 048
  7. ADDERALL 10 [Concomitant]
     Indication: DRUG USE FOR UNKNOWN INDICATION
     Dosage: QD
     Route: 048
  8. ZOFRAN [Concomitant]
     Indication: NAUSEA
     Route: 048

REACTIONS (7)
  - BLOOD POTASSIUM DECREASED [None]
  - FATIGUE [None]
  - OROPHARYNGEAL PAIN [None]
  - PAIN [None]
  - PHARYNGITIS STREPTOCOCCAL [None]
  - PYREXIA [None]
  - VOMITING [None]
